FAERS Safety Report 8186992-6 (Version None)
Quarter: 2012Q1

REPORT INFORMATION
  Report Type: 
  Country: None (occurrence: None)
  Receive Date: 20120213
  Receipt Date: 20120111
  Transmission Date: 20120608
  Serious: No
  Sender: FDA-Public Use
  Company Number: 1000026974

PATIENT
  Age: 60 Year
  Sex: Male

DRUGS (4)
  1. SAVELLA [Suspect]
     Indication: FIBROMYALGIA
     Dosage: 12.5 MG (12.5 MG,1 IN 1 D),ORAL ; 25 MG (12.5 MG,2 IN 1 D),ORAL
     Route: 048
     Dates: start: 20120108, end: 20120109
  2. SAVELLA [Suspect]
     Indication: FIBROMYALGIA
     Dosage: 12.5 MG (12.5 MG,1 IN 1 D),ORAL ; 25 MG (12.5 MG,2 IN 1 D),ORAL
     Route: 048
     Dates: start: 20120107, end: 20120107
  3. LYRICA [Concomitant]
  4. SAVELLA [Suspect]
     Indication: FIBROMYALGIA
     Dosage: 50 MG 925 MG,2 IN 1 D),ORAL
     Route: 048
     Dates: start: 20120110, end: 20120111

REACTIONS (1)
  - URINE OUTPUT DECREASED [None]
